FAERS Safety Report 7821056-X (Version None)
Quarter: 2011Q4

REPORT INFORMATION
  Report Type: 
  Country: None (occurrence: None)
  Receive Date: 20111018
  Receipt Date: 20111012
  Transmission Date: 20120403
  Serious: No
  Sender: FDA-Public Use
  Company Number: US-PFIZER INC-2011244336

PATIENT
  Sex: Female

DRUGS (3)
  1. ADDERALL 5 [Concomitant]
     Dosage: 30 MG, 2X/DAY
  2. MEDROXYPROGESTERONE ACETATE [Suspect]
     Indication: OFF LABEL USE
     Dosage: 150 MG, UNK
     Route: 030
     Dates: start: 20110101
  3. MEDROXYPROGESTERONE ACETATE [Suspect]
     Indication: MENOPAUSAL SYMPTOMS

REACTIONS (2)
  - DRUG INEFFECTIVE FOR UNAPPROVED INDICATION [None]
  - INCORRECT DOSE ADMINISTERED [None]
